FAERS Safety Report 12312558 (Version 4)
Quarter: 2016Q2

REPORT INFORMATION
  Report Type: Spontaneous
  Country: US (occurrence: US)
  Receive Date: 20160428
  Receipt Date: 20160616
  Transmission Date: 20160815
  Serious: Yes (Other)
  Sender: FDA-Public Use
  Company Number: US-ROCHE-1746237

PATIENT
  Age: 84 Year
  Sex: Male

DRUGS (23)
  1. ASPIRIN. [Concomitant]
     Active Substance: ASPIRIN
     Route: 048
  2. ATORVASTATIN [Concomitant]
     Active Substance: ATORVASTATIN
     Indication: DYSLIPIDAEMIA
     Route: 048
  3. NEURONTIN [Concomitant]
     Active Substance: GABAPENTIN
     Route: 048
  4. JANUVIA [Concomitant]
     Active Substance: SITAGLIPTIN PHOSPHATE
     Route: 048
  5. ALBUTEROL. [Concomitant]
     Active Substance: ALBUTEROL
     Dosage: 4-6 PRM
     Route: 065
  6. LATANOPROST. [Concomitant]
     Active Substance: LATANOPROST
     Dosage: QHS
     Route: 065
  7. MECLIZINE [Concomitant]
     Active Substance: MECLIZINE HYDROCHLORIDE
     Dosage: PRN
     Route: 048
  8. AVASTIN [Suspect]
     Active Substance: BEVACIZUMAB
     Indication: NEOVASCULARISATION
     Route: 050
     Dates: start: 20160411, end: 20160411
  9. LISINOPRIL. [Concomitant]
     Active Substance: LISINOPRIL
     Route: 065
  10. METFORMIN [Concomitant]
     Active Substance: METFORMIN HYDROCHLORIDE
     Route: 048
  11. AREDS 2 FORMULA [Concomitant]
  12. AVASTIN [Suspect]
     Active Substance: BEVACIZUMAB
     Indication: NEOVASCULAR AGE-RELATED MACULAR DEGENERATION
  13. TRICOR [Concomitant]
     Active Substance: FENOFIBRATE
     Indication: DYSLIPIDAEMIA
     Route: 048
  14. FLOVENT [Concomitant]
     Active Substance: FLUTICASONE PROPIONATE
     Dosage: 250 MCG/PUFF
     Route: 065
  15. SALMETEROL [Concomitant]
     Active Substance: SALMETEROL
     Dosage: 50 MCG/DOSE
     Route: 065
  16. SIMVASTATIN. [Concomitant]
     Active Substance: SIMVASTATIN
     Route: 048
  17. PROAIR RESPICLICK [Concomitant]
     Active Substance: ALBUTEROL SULFATE
     Dosage: 90MCG/PUFF
     Route: 065
  18. ALLOPURINOL. [Concomitant]
     Active Substance: ALLOPURINOL
     Route: 048
  19. ANORO ELLIPTA [Concomitant]
     Active Substance: UMECLIDINIUM BROMIDE\VILANTEROL TRIFENATATE
     Dosage: 62.5/25 MCG
     Route: 065
  20. DIGOXIN. [Concomitant]
     Active Substance: DIGOXIN
     Route: 048
  21. DILTIAZEM [Concomitant]
     Active Substance: DILTIAZEM
     Route: 048
  22. LOSARTAN. [Concomitant]
     Active Substance: LOSARTAN
     Route: 048
  23. WARFARIN [Concomitant]
     Active Substance: WARFARIN
     Route: 048

REACTIONS (4)
  - Anterior chamber cell [Unknown]
  - Off label use [Unknown]
  - Uveitis [Not Recovered/Not Resolved]
  - Keratopathy [Unknown]

NARRATIVE: CASE EVENT DATE: 20160412
